FAERS Safety Report 6972270-7 (Version None)
Quarter: 2010Q3

REPORT INFORMATION
  Report Type: 
  Country: None (occurrence: None)
  Receive Date: 20100909
  Receipt Date: 20100901
  Transmission Date: 20110219
  Serious: Yes (Hospitalization)
  Sender: FDA-Public Use
  Company Number: JP-JNJFOC-20100901970

PATIENT
  Sex: Female

DRUGS (2)
  1. LEVOFLOXACIN [Suspect]
     Indication: PYELONEPHRITIS ACUTE
     Route: 048
  2. COCARL [Concomitant]
     Indication: PYELONEPHRITIS ACUTE
     Route: 048

REACTIONS (1)
  - ENTERITIS [None]
